FAERS Safety Report 7969239-2 (Version None)
Quarter: 2011Q4

REPORT INFORMATION
  Report Type: 
  Country: None (occurrence: None)
  Receive Date: 20111209
  Receipt Date: 20111129
  Transmission Date: 20120403
  Serious: Yes (Hospitalization)
  Sender: FDA-Public Use
  Company Number: AU-MERCK-1112USA00075

PATIENT
  Age: 71 Year
  Sex: Female

DRUGS (2)
  1. FOSAMAX [Suspect]
     Route: 065
     Dates: start: 20040101, end: 20071201
  2. FOSAMAX [Suspect]
     Route: 065
     Dates: start: 20080901, end: 20081201

REACTIONS (2)
  - SALIVARY GLAND MASS [None]
  - COLONIC POLYP [None]
